FAERS Safety Report 10255653 (Version 3)
Quarter: 2015Q2

REPORT INFORMATION
  Report Type: Report from Study
  Country: US (occurrence: US)
  Receive Date: 20140624
  Receipt Date: 20150427
  Transmission Date: 20150821
  Serious: Yes (Hospitalization)
  Sender: FDA-Public Use
  Company Number: US-ABBVIE-12P-163-0920586-00

PATIENT
  Sex: Male
  Weight: 2 kg

DRUGS (16)
  1. DARUNAVIR [Concomitant]
     Active Substance: DARUNAVIR
     Indication: PRODUCT USED FOR UNKNOWN INDICATION
     Dosage: 1 COURSE
     Route: 065
     Dates: start: 20110831, end: 20111002
  2. INTELENCE [Concomitant]
     Active Substance: ETRAVIRINE
     Indication: MATERNAL EXPOSURE TIMING UNSPECIFIED
     Route: 064
  3. EPZICOM [Concomitant]
     Active Substance: ABACAVIR SULFATE\LAMIVUDINE
     Indication: MATERNAL EXPOSURE TIMING UNSPECIFIED
     Route: 064
  4. ETRAVIRINE [Concomitant]
     Active Substance: ETRAVIRINE
     Route: 065
     Dates: start: 20111108, end: 20120109
  5. ETRAVIRINE [Concomitant]
     Active Substance: ETRAVIRINE
     Indication: PRODUCT USED FOR UNKNOWN INDICATION
     Dosage: 4 COURSES
     Route: 065
     Dates: start: 20111025, end: 20111107
  6. RITONAVIR SOFT GELATIN CAPSULES [Suspect]
     Active Substance: RITONAVIR
     Indication: MATERNAL EXPOSURE TIMING UNSPECIFIED
     Route: 064
  7. PREZISTA [Concomitant]
     Active Substance: DARUNAVIR ETHANOLATE
     Indication: MATERNAL EXPOSURE TIMING UNSPECIFIED
     Route: 064
  8. ZIDOVUDINE. [Concomitant]
     Active Substance: ZIDOVUDINE
     Route: 042
     Dates: start: 20120109, end: 20120109
  9. ZIDOVUDINE. [Concomitant]
     Active Substance: ZIDOVUDINE
     Route: 042
     Dates: start: 20120109, end: 20120109
  10. ABACAVIR+LAMIVUDINE (EPZICOME, EPZ) [Concomitant]
     Indication: PRODUCT USED FOR UNKNOWN INDICATION
     Dosage: 1 COURSE
     Route: 065
     Dates: start: 20111025
  11. RITONAVIR. [Concomitant]
     Active Substance: RITONAVIR
     Indication: PRODUCT USED FOR UNKNOWN INDICATION
     Dosage: 1 COURSE
     Route: 065
     Dates: start: 20110831, end: 20111002
  12. INTELENCE [Concomitant]
     Active Substance: ETRAVIRINE
     Route: 064
     Dates: start: 20111108
  13. TRUVADA [Concomitant]
     Active Substance: EMTRICITABINE\TENOFOVIR DISOPROXIL FUMARATE
     Indication: MATERNAL EXPOSURE TIMING UNSPECIFIED
     Route: 064
  14. ZIDOVUDINE. [Concomitant]
     Active Substance: ZIDOVUDINE
     Indication: MATERNAL EXPOSURE TIMING UNSPECIFIED
     Dosage: 8 COURSES
     Route: 042
     Dates: start: 20120101, end: 20120101
  15. ZIDOVUDINE. [Concomitant]
     Active Substance: ZIDOVUDINE
     Route: 042
     Dates: start: 20120101, end: 20120102
  16. TENOFOVIR DISOPROXIL [Concomitant]
     Active Substance: TENOFOVIR DISOPROXIL
     Indication: PRODUCT USED FOR UNKNOWN INDICATION
     Dosage: 1 COURSES
     Route: 065
     Dates: start: 20110831, end: 20111002

REACTIONS (4)
  - Premature baby [Unknown]
  - Constipation [Recovered/Resolved]
  - Foetal exposure during pregnancy [Unknown]
  - Hyperbilirubinaemia [Unknown]

NARRATIVE: CASE EVENT DATE: 20120109
